FAERS Safety Report 22097721 (Version 1)
Quarter: 2023Q1

REPORT INFORMATION
  Report Type: Report from Study
  Country: JP (occurrence: JP)
  Receive Date: 20230315
  Receipt Date: 20230315
  Transmission Date: 20230418
  Serious: Yes (Death, Other)
  Sender: FDA-Public Use
  Company Number: JP-PFIZER INC-PV202300046492

PATIENT

DRUGS (2)
  1. BEVACIZUMAB [Suspect]
     Active Substance: BEVACIZUMAB
     Indication: Colorectal cancer metastatic
     Dosage: 5 MG/KG, CYCLIC (DAYS 1 AND 15, 28-DAY CYCLE) INTRAVENOUS INFUSION
     Route: 041
  2. TIPIRACIL HYDROCHLORIDE\TRIFLURIDINE [Suspect]
     Active Substance: TIPIRACIL HYDROCHLORIDE\TRIFLURIDINE
     Indication: Colorectal cancer metastatic
     Dosage: 35 MG/M2, CYCLIC (DAYS 1-5 AND 8-12 ,28-DAY CYCLE)
     Route: 048

REACTIONS (1)
  - Cerebral infarction [Fatal]
